FAERS Safety Report 15773455 (Version 1)
Quarter: 2018Q4

REPORT INFORMATION
  Report Type: Spontaneous
  Country: US (occurrence: US)
  Receive Date: 20181228
  Receipt Date: 20181228
  Transmission Date: 20190205
  Serious: No
  Sender: FDA-Public Use
  Company Number: US-CYCLE PHARMACEUTICALS LTD-2018-CYC-000011

PATIENT
  Sex: Male

DRUGS (2)
  1. NITYR [Suspect]
     Active Substance: NITISINONE
     Dosage: 7 MG, QD (IN P.M.)
     Route: 048
  2. NITYR [Suspect]
     Active Substance: NITISINONE
     Indication: TYROSINAEMIA
     Dosage: 10 MG, QD (IN A.M.)
     Route: 048

REACTIONS (2)
  - Irritability [Not Recovered/Not Resolved]
  - Insomnia [Not Recovered/Not Resolved]

NARRATIVE: CASE EVENT DATE: 2018
